FAERS Safety Report 5812761-5 (Version None)
Quarter: 2008Q3

REPORT INFORMATION
  Report Type: 
  Country: None (occurrence: None)
  Receive Date: 20080714
  Receipt Date: 20080714
  Transmission Date: 20090109
  Serious: Yes (Hospitalization)
  Sender: FDA-Public Use
  Company Number: None

PATIENT
  Sex: Male
  Weight: 113 kg

DRUGS (5)
  1. PEG-L-ASPARAGINASE (K-H) [Suspect]
     Dosage: 5750 UNIT
  2. VINCRISTINE SULFATE [Suspect]
     Dosage: 6 MG
  3. DEXAMETHASONE [Suspect]
     Dosage: 154 MG
  4. DOXORUBICIN HCL [Suspect]
     Dosage: 172.5 MG
  5. METHOTREXATE [Suspect]
     Dosage: 7.5 MG

REACTIONS (5)
  - ARTHRALGIA [None]
  - DEEP VEIN THROMBOSIS [None]
  - HYPERTENSION [None]
  - PULMONARY EMBOLISM [None]
  - TACHYCARDIA [None]
